FAERS Safety Report 8134748-2 (Version None)
Quarter: 2012Q1

REPORT INFORMATION
  Report Type: 
  Country: None (occurrence: None)
  Receive Date: 20120214
  Receipt Date: 20120206
  Transmission Date: 20120608
  Serious: Yes (Other)
  Sender: FDA-Public Use
  Company Number: US-JNJFOC-20111204604

PATIENT
  Sex: Male
  Weight: 101.61 kg

DRUGS (4)
  1. HEPARIN [Suspect]
     Indication: ILL-DEFINED DISORDER
  2. LIPITOR [Interacting]
     Indication: PRODUCT USED FOR UNKNOWN INDICATION
  3. XARELTO [Suspect]
     Indication: THROMBOSIS PROPHYLAXIS
     Route: 048
     Dates: start: 20111129, end: 20111201
  4. XARELTO [Suspect]
     Route: 048
     Dates: start: 20111129, end: 20111201

REACTIONS (3)
  - HAEMATOCRIT DECREASED [None]
  - DRUG INTERACTION [None]
  - HEPARIN-INDUCED THROMBOCYTOPENIA [None]
